FAERS Safety Report 16741621 (Version 2)
Quarter: 2019Q4

REPORT INFORMATION
  Report Type: Spontaneous
  Country: US (occurrence: US)
  Receive Date: 20190826
  Receipt Date: 20191203
  Transmission Date: 20200122
  Serious: Yes (Hospitalization, Other)
  Sender: FDA-Public Use
  Company Number: US-GLAXOSMITHKLINE-US2019151220

PATIENT
  Age: 83 Year
  Sex: Male

DRUGS (1)
  1. ADVAIR DISKUS [Suspect]
     Active Substance: FLUTICASONE PROPIONATE\SALMETEROL XINAFOATE
     Indication: PRODUCT USED FOR UNKNOWN INDICATION
     Dosage: 1 PUFF(S), QD
     Route: 055

REACTIONS (9)
  - Swelling [Recovered/Resolved]
  - Dyspnoea [Unknown]
  - Nasopharyngitis [Unknown]
  - Feeling abnormal [Unknown]
  - Product dose omission [Unknown]
  - Adverse drug reaction [Unknown]
  - Lung disorder [Unknown]
  - Cataract [Unknown]
  - Underdose [Unknown]

NARRATIVE: CASE EVENT DATE: 201902
